FAERS Safety Report 4892326-2 (Version None)
Quarter: 2006Q1

REPORT INFORMATION
  Report Type: 
  Country: None (occurrence: None)
  Receive Date: 20060125
  Receipt Date: 20060125
  Transmission Date: 20060701
  Serious: No
  Sender: FDA-Public Use
  Company Number: None

PATIENT
  Sex: Female

DRUGS (3)
  1. FLUOXETINE [Suspect]
     Indication: ANOREXIA NERVOSA
     Dosage: 80 MG DAILY
  2. FLUOXETINE [Suspect]
     Indication: CONVULSION
     Dosage: 80 MG DAILY
  3. FLUOXETINE [Suspect]
     Indication: MAJOR DEPRESSION
     Dosage: 80 MG DAILY

REACTIONS (2)
  - CONDITION AGGRAVATED [None]
  - PHARMACEUTICAL PRODUCT COMPLAINT [None]
